FAERS Safety Report 18449031 (Version 2)
Quarter: 2020Q4

REPORT INFORMATION
  Report Type: Other
  Country: GR (occurrence: GR)
  Receive Date: 20201030
  Receipt Date: 20201030
  Transmission Date: 20210114
  Serious: Yes (Other)
  Sender: FDA-Public Use
  Company Number: GR-ROCHE-2701090

PATIENT
  Sex: Female

DRUGS (5)
  1. OCRELIZUMAB. [Suspect]
     Active Substance: OCRELIZUMAB
     Indication: MULTIPLE SCLEROSIS
     Route: 042
     Dates: start: 20180607
  2. FAMPYRA [Concomitant]
     Active Substance: DALFAMPRIDINE
     Dosage: 1X2, ONGOING
     Route: 048
  3. BETMIGA [Concomitant]
     Active Substance: MIRABEGRON
     Dosage: 1X1, ONGOING
     Route: 048
  4. CIPRALEX [Concomitant]
     Active Substance: ESCITALOPRAM OXALATE
     Indication: DEPRESSION
     Dosage: 1X1, ONGOING
     Route: 048
  5. MIOREL [THIOCOLCHICOSIDE] [Concomitant]
     Active Substance: THIOCOLCHICOSIDE
     Indication: MUSCLE SPASTICITY
     Dosage: 2X3, ONGOING
     Route: 048

REACTIONS (1)
  - Deep vein thrombosis [Recovered/Resolved]

NARRATIVE: CASE EVENT DATE: 20200601
